FAERS Safety Report 7685785-3 (Version None)
Quarter: 2011Q3

REPORT INFORMATION
  Report Type: 
  Country: None (occurrence: None)
  Receive Date: 20110815
  Receipt Date: 20110815
  Transmission Date: 20111222
  Serious: Yes (Life-Threatening, Hospitalization)
  Sender: FDA-Public Use
  Company Number: None

PATIENT
  Sex: Female
  Weight: 158.75 kg

DRUGS (1)
  1. LUPRON [Suspect]
     Indication: UTERINE LEIOMYOMA
     Dosage: 7.5
     Route: 058
     Dates: start: 20061027, end: 20061027

REACTIONS (23)
  - DYSSTASIA [None]
  - INSOMNIA [None]
  - WEIGHT INCREASED [None]
  - DEPRESSION [None]
  - HEADACHE [None]
  - HYPOAESTHESIA [None]
  - COUGH [None]
  - VOMITING [None]
  - VISION BLURRED [None]
  - ASTHENIA [None]
  - NAUSEA [None]
  - CHEST PAIN [None]
  - BLOOD PRESSURE INADEQUATELY CONTROLLED [None]
  - NECK PAIN [None]
  - FLUID RETENTION [None]
  - ANXIETY [None]
  - HAEMORRHAGE [None]
  - PAIN [None]
  - AMNESIA [None]
  - BACK PAIN [None]
  - GAIT DISTURBANCE [None]
  - MALAISE [None]
  - LOSS OF CONTROL OF LEGS [None]
